FAERS Safety Report 5685015-8 (Version None)
Quarter: 2008Q1

REPORT INFORMATION
  Report Type: 
  Country: None (occurrence: None)
  Receive Date: 20080328
  Receipt Date: 19970715
  Transmission Date: 20080703
  Serious: Yes (Death)
  Sender: FDA-Public Use
  Company Number: US-ROCHE-84047

PATIENT
  Age: 69 Year
  Sex: Female
  Weight: 54.4 kg

DRUGS (5)
  1. ROCEPHIN [Suspect]
     Indication: LYME DISEASE
     Route: 042
  2. ROCEPHIN [Suspect]
     Route: 042
     Dates: start: 19970713, end: 19970714
  3. LANOXIN [Concomitant]
  4. LASIX [Concomitant]
  5. PERCOCET [Concomitant]
     Indication: PAIN

REACTIONS (2)
  - DEATH [None]
  - PAIN [None]
